FAERS Safety Report 7507129-X (Version None)
Quarter: 2011Q2

REPORT INFORMATION
  Report Type: 
  Country: None (occurrence: None)
  Receive Date: 20110526
  Receipt Date: 20110513
  Transmission Date: 20111010
  Serious: Yes (Hospitalization)
  Sender: FDA-Public Use
  Company Number: US-CELGENEUS-163-21880-11051795

PATIENT
  Sex: Female

DRUGS (9)
  1. CELLCEPT [Concomitant]
     Route: 065
  2. PREDNISONE [Concomitant]
     Route: 065
  3. ACIPHEX [Concomitant]
     Route: 065
  4. METHOTREXATE [Concomitant]
     Route: 065
  5. ALTACE [Concomitant]
     Route: 065
  6. SYNTHROID [Concomitant]
     Route: 065
  7. REVLIMID [Suspect]
     Indication: MULTIPLE MYELOMA
     Dosage: 25 MILLIGRAM
     Route: 048
     Dates: start: 20090626, end: 20110201
  8. LOMOTIL [Concomitant]
     Route: 065
  9. XANAX [Concomitant]
     Route: 065

REACTIONS (1)
  - SYSTEMIC LUPUS ERYTHEMATOSUS [None]
